FAERS Safety Report 7141931-1 (Version None)
Quarter: 2010Q4

REPORT INFORMATION
  Report Type: 
  Country: None (occurrence: None)
  Receive Date: 20101203
  Receipt Date: 20101203
  Transmission Date: 20110411
  Serious: Yes (Other)
  Sender: FDA-Public Use
  Company Number: None

PATIENT
  Sex: Male
  Weight: 24.9478 kg

DRUGS (1)
  1. LANSOPRAZOLE [Suspect]
     Dosage: 30 MG DAILY G-TUBE

REACTIONS (1)
  - PRODUCT SUBSTITUTION ISSUE [None]
